FAERS Safety Report 4582690-6 (Version None)
Quarter: 2005Q1

REPORT INFORMATION
  Report Type: 
  Country: None (occurrence: None)
  Receive Date: 20050215
  Receipt Date: 20050202
  Transmission Date: 20050727
  Serious: Yes (Hospitalization)
  Sender: FDA-Public Use
  Company Number: US-GLAXOSMITHKLINE-A0543668A

PATIENT
  Age: 87 Year
  Sex: Female
  Weight: 46 kg

DRUGS (4)
  1. ECOTRIN ADULT LOW STRENGTH TABLETS [Suspect]
     Indication: ANALGESIC INTERVENTION SUPPORTIVE THERAPY
     Route: 048
     Dates: start: 20000101
  2. POLIDENT DENTURE CLEANSER TABLETS [Suspect]
     Indication: MEDICAL DEVICE COMPLICATION
  3. LASIX [Concomitant]
     Indication: FLUID RETENTION
     Route: 048
  4. HEART MEDICATION [Concomitant]
     Indication: CARDIAC FAILURE CONGESTIVE
     Route: 048

REACTIONS (6)
  - ABDOMINAL DISTENSION [None]
  - CARDIAC FAILURE CONGESTIVE [None]
  - DYSPNOEA [None]
  - JOINT SWELLING [None]
  - PHARMACEUTICAL PRODUCT COMPLAINT [None]
  - WEIGHT INCREASED [None]
